FAERS Safety Report 8054933 (Version 8)
Quarter: 2015Q4

REPORT INFORMATION
  Report Type: Spontaneous
  Country: US (occurrence: US)
  Receive Date: 20110726
  Receipt Date: 20151130
  Transmission Date: 20160305
  Serious: Yes (Hospitalization, Congenital Anomaly, Other)
  Sender: FDA-Public Use
  Company Number: US-GLAXOSMITHKLINE-A0934116A

PATIENT
  Age: 0 Day
  Sex: Female
  Weight: 1.81 kg

DRUGS (10)
  1. PRENATAL VITAMINS [Concomitant]
     Active Substance: VITAMINS
  2. PAXIL [Suspect]
     Active Substance: PAROXETINE HYDROCHLORIDE
     Indication: MOOD ALTERED
     Dosage: 40 MG, UNK
     Route: 064
  3. PREDNISONE. [Concomitant]
     Active Substance: PREDNISONE
  4. FOLIC ACID. [Concomitant]
     Active Substance: FOLIC ACID
     Indication: RHEUMATOID ARTHRITIS
     Route: 064
     Dates: start: 2000
  5. ZESTORETIC [Concomitant]
     Active Substance: HYDROCHLOROTHIAZIDE\LISINOPRIL
  6. SIMVASTATIN. [Concomitant]
     Active Substance: SIMVASTATIN
     Indication: BLOOD CHOLESTEROL
     Route: 064
     Dates: start: 2000
  7. LANTUS [Concomitant]
     Active Substance: INSULIN GLARGINE
     Route: 064
  8. PAXIL [Suspect]
     Active Substance: PAROXETINE HYDROCHLORIDE
     Indication: DEPRESSION
     Dosage: UNK
     Route: 064
  9. PAXIL [Suspect]
     Active Substance: PAROXETINE HYDROCHLORIDE
     Indication: SLEEP DISORDER
     Dosage: 20 MG, UNK
     Route: 064
  10. INSULIN [Concomitant]
     Active Substance: INSULIN NOS

REACTIONS (15)
  - Ear malformation [Unknown]
  - Torticollis [Unknown]
  - Pulmonary artery stenosis congenital [Unknown]
  - Deafness [Unknown]
  - Foetal exposure during pregnancy [Unknown]
  - Congenital scoliosis [Unknown]
  - Congenital heart valve disorder [Unknown]
  - Patent ductus arteriosus [Unknown]
  - Ventricular septal defect [Unknown]
  - Hemivertebra [Unknown]
  - Plagiocephaly [Unknown]
  - Rib hypoplasia [Unknown]
  - Atrial septal defect [Not Recovered/Not Resolved]
  - Intraventricular haemorrhage neonatal [Unknown]
  - Deafness neurosensory [Unknown]

NARRATIVE: CASE EVENT DATE: 20020313
